FAERS Safety Report 6686012-6 (Version None)
Quarter: 2010Q2

REPORT INFORMATION
  Report Type: 
  Country: None (occurrence: None)
  Receive Date: 20100415
  Receipt Date: 20100415
  Transmission Date: 20101027
  Serious: Yes (Other)
  Sender: FDA-Public Use
  Company Number: None

PATIENT
  Sex: Female
  Weight: 89 kg

DRUGS (2)
  1. VERSED [Suspect]
     Indication: SEDATIVE THERAPY
     Dosage: 1MG X1 IV
     Route: 042
  2. FENTANYL [Suspect]
     Dosage: 50 MCG X1 IV
     Route: 042

REACTIONS (2)
  - LETHARGY [None]
  - OXYGEN SATURATION DECREASED [None]
